FAERS Safety Report 17590645 (Version 1)
Quarter: 2020Q1

REPORT INFORMATION
  Report Type: Spontaneous
  Country: US (occurrence: US)
  Receive Date: 20200325
  Receipt Date: 20200325
  Transmission Date: 20200409
  Serious: Yes (Hospitalization)
  Sender: FDA-Public Use
  Company Number: None

PATIENT
  Sex: Male

DRUGS (11)
  1. ATENOLOL. [Concomitant]
     Active Substance: ATENOLOL
  2. METFORMIN [Concomitant]
     Active Substance: METFORMIN HYDROCHLORIDE
  3. OMEPRAZOLE. [Concomitant]
     Active Substance: OMEPRAZOLE
  4. XELJANZ XR [Suspect]
     Active Substance: TOFACITINIB CITRATE
     Indication: PSORIATIC ARTHROPATHY
     Route: 048
     Dates: start: 20180520
  5. LEVOTHYROXIN [Concomitant]
     Active Substance: LEVOTHYROXINE
  6. OXAZEPAM. [Concomitant]
     Active Substance: OXAZEPAM
  7. SMZ/TMP DS [Concomitant]
     Active Substance: SULFAMETHOXAZOLE\TRIMETHOPRIM
  8. ALLOPURINOL. [Suspect]
     Active Substance: ALLOPURINOL
  9. DIAZEPAM. [Concomitant]
     Active Substance: DIAZEPAM
  10. HYDROMENT [Concomitant]
  11. IPRATOPIUM [Concomitant]
     Active Substance: IPRATROPIUM BROMIDE

REACTIONS (2)
  - Pneumonia [None]
  - Influenza [None]
